FAERS Safety Report 4552885-6 (Version None)
Quarter: 2005Q1

REPORT INFORMATION
  Report Type: 
  Country: None (occurrence: None)
  Receive Date: 20050114
  Receipt Date: 20050107
  Transmission Date: 20050727
  Serious: Yes (Life-Threatening, Hospitalization, Disabling)
  Sender: FDA-Public Use
  Company Number: US-MERCK-0501USA00659

PATIENT
  Age: 47 Year
  Sex: Male

DRUGS (5)
  1. VIOXX [Suspect]
     Route: 048
  2. GLUCOVANCE [Concomitant]
     Route: 065
  3. ACTOS [Concomitant]
     Route: 065
  4. CODEINE [Concomitant]
     Route: 065
  5. DARVOCET-N 100 [Concomitant]
     Route: 065

REACTIONS (2)
  - CORONARY ARTERY OCCLUSION [None]
  - MYOCARDIAL INFARCTION [None]
